FAERS Safety Report 4895922-1 (Version None)
Quarter: 2006Q1

REPORT INFORMATION
  Report Type: 
  Country: None (occurrence: None)
  Receive Date: 20060125
  Receipt Date: 20060112
  Transmission Date: 20060701
  Serious: Yes (Death)
  Sender: FDA-Public Use
  Company Number: SGB1-2005-00596

PATIENT
  Age: 56 Year
  Sex: Female

DRUGS (5)
  1. MIDODRINE (MIDODRINE) TABLET [Suspect]
     Indication: HEPATORENAL SYNDROME
     Dosage: 5 MG, 3X/DAY: TID, INTRAVENOUS
     Route: 042
     Dates: start: 20051207, end: 20051208
  2. LASIX [Concomitant]
  3. VENACTONE (POTASSIUM CANRENOATE) [Concomitant]
  4. CORGARD [Concomitant]
  5. NEXIUM [Concomitant]

REACTIONS (2)
  - CARDIAC ARREST [None]
  - CONVULSION [None]
